FAERS Safety Report 5931400-6 (Version None)
Quarter: 2008Q4

REPORT INFORMATION
  Report Type: 
  Country: None (occurrence: None)
  Receive Date: 20081027
  Receipt Date: 20081015
  Transmission Date: 20090506
  Serious: Yes (Other)
  Sender: FDA-Public Use
  Company Number: JP-ROCHE-592963

PATIENT
  Sex: Male

DRUGS (2)
  1. COPEGUS [Suspect]
     Route: 048
     Dates: start: 20070810
  2. PEG-INTERFERON ALFA 2B [Suspect]
     Dosage: DOSE: 100 MCG
     Route: 058
     Dates: start: 20070810

REACTIONS (1)
  - BILE DUCT STONE [None]
